FAERS Safety Report 4718921-9 (Version None)
Quarter: 2005Q3

REPORT INFORMATION
  Report Type: 
  Country: None (occurrence: None)
  Receive Date: 20050719
  Receipt Date: 20050712
  Transmission Date: 20060218
  Serious: Yes (Hospitalization, Other)
  Sender: FDA-Public Use
  Company Number: 200511056BCC

PATIENT
  Age: 73 Year
  Sex: Female
  Weight: 63.5036 kg

DRUGS (12)
  1. BAYER REGIMEN (ACETYLSALICYLIC ACID) [Suspect]
     Indication: MYOCARDIAL INFARCTION
     Dosage: SEE IMAGE
     Dates: end: 20041015
  2. BAYER REGIMEN (ACETYLSALICYLIC ACID) [Suspect]
     Indication: PROPHYLAXIS
     Dosage: SEE IMAGE
     Dates: end: 20041015
  3. BAYER REGIMEN (ACETYLSALICYLIC ACID) [Suspect]
     Indication: MYOCARDIAL INFARCTION
     Dosage: SEE IMAGE
  4. BAYER REGIMEN (ACETYLSALICYLIC ACID) [Suspect]
     Indication: PROPHYLAXIS
     Dosage: SEE IMAGE
  5. BAYER REGIMEN (ACETYLSALICYLIC ACID) [Suspect]
     Indication: MYOCARDIAL INFARCTION
     Dosage: SEE IMAGE
     Dates: start: 20041018
  6. BAYER REGIMEN (ACETYLSALICYLIC ACID) [Suspect]
     Indication: PROPHYLAXIS
     Dosage: SEE IMAGE
     Dates: start: 20041018
  7. PLAVIX [Suspect]
     Dosage: ORAL
     Route: 048
     Dates: start: 20041001
  8. ZOCOR [Concomitant]
  9. LISINOPRIL [Concomitant]
  10. PRANDIN [Concomitant]
  11. GLYBURIDE [Concomitant]
  12. EYE DROPS [Concomitant]

REACTIONS (2)
  - CEREBROVASCULAR ACCIDENT [None]
  - EPISTAXIS [None]
